FAERS Safety Report 8493420-X (Version None)
Quarter: 2012Q3

REPORT INFORMATION
  Report Type: 
  Country: None (occurrence: None)
  Receive Date: 20120706
  Receipt Date: 20120622
  Transmission Date: 20120928
  Serious: Yes (Death, Hospitalization, Other)
  Sender: FDA-Public Use
  Company Number: DK-FRI-1000025398

PATIENT
  Sex: Female
  Weight: 103 kg

DRUGS (7)
  1. LITHIUM CITRATE [Suspect]
     Indication: SCHIZOAFFECTIVE DISORDER
     Dosage: 1+0+0+1.5 (6 MILLIMOLES)
     Route: 048
     Dates: start: 20050101, end: 20111023
  2. FERRO DURETTER [Concomitant]
     Dosage: 100 MG
     Dates: end: 20111023
  3. CENTYL MED KALIUMKLORID [Concomitant]
     Dosage: 1 DF
     Dates: end: 20111023
  4. MIRTAZAPINE [Suspect]
     Indication: SCHIZOAFFECTIVE DISORDER
     Dosage: 30 MG
     Route: 048
     Dates: start: 20110101, end: 20111023
  5. ALPRAZOLAM [Concomitant]
     Dosage: 0.5 MG
     Dates: end: 20111022
  6. ZIPRASIDONE HYDROCHLORIDE [Suspect]
     Indication: SCHIZOAFFECTIVE DISORDER
     Dosage: 80 MG
     Dates: start: 20050101, end: 20111023
  7. ESCITALOPRAM [Suspect]
     Indication: SCHIZOAFFECTIVE DISORDER
     Dosage: 30 MG
     Route: 048
     Dates: start: 20050101, end: 20111023

REACTIONS (24)
  - LIVER DISORDER [None]
  - DEPRESSED LEVEL OF CONSCIOUSNESS [None]
  - DYSPNOEA [None]
  - URINARY TRACT INFECTION [None]
  - LACTIC ACIDOSIS [None]
  - HYPERVENTILATION [None]
  - HYPERTENSION [None]
  - BLOOD CREATINE PHOSPHOKINASE INCREASED [None]
  - CARDIAC HYPERTROPHY [None]
  - MYOGLOBIN BLOOD INCREASED [None]
  - RENAL FAILURE ACUTE [None]
  - HYPERDYNAMIC LEFT VENTRICLE [None]
  - FALL [None]
  - HUMERUS FRACTURE [None]
  - CONSTIPATION [None]
  - OVERDOSE [None]
  - HEPATIC ENZYME INCREASED [None]
  - NEUROLEPTIC MALIGNANT SYNDROME [None]
  - ORGAN FAILURE [None]
  - RENAL FAILURE [None]
  - RHABDOMYOLYSIS [None]
  - HEPATIC CIRRHOSIS [None]
  - OSTEOSYNTHESIS [None]
  - PYREXIA [None]
